FAERS Safety Report 8212646-3 (Version None)
Quarter: 2012Q1

REPORT INFORMATION
  Report Type: 
  Country: None (occurrence: None)
  Receive Date: 20120315
  Receipt Date: 20120307
  Transmission Date: 20120608
  Serious: Yes (Hospitalization)
  Sender: FDA-Public Use
  Company Number: US-BAYER-2011-045226

PATIENT
  Age: 19 Year
  Sex: Female
  Weight: 90 kg

DRUGS (6)
  1. YASMIN [Suspect]
     Indication: CONTRACEPTION
     Dosage: UNK
     Dates: start: 20081101, end: 20090401
  2. YAZ [Suspect]
     Indication: CONTRACEPTION
     Dosage: UNK
     Dates: start: 20080501, end: 20081101
  3. DICLOFENAC SODIUM [Concomitant]
     Dosage: 75 UNK
     Dates: start: 20090209
  4. PROPOXYPHENE HYDROCHLORIDE [Concomitant]
     Dosage: UNK
     Dates: start: 20090126
  5. HYDROCODONE CP [Concomitant]
     Dosage: UNK
     Dates: start: 20090209, end: 20090217
  6. NAPROXEN [Concomitant]
     Dosage: UNK
     Dates: start: 20090217

REACTIONS (8)
  - GENERAL PHYSICAL HEALTH DETERIORATION [None]
  - INJURY [None]
  - CHEST PAIN [None]
  - PAIN [None]
  - ANXIETY [None]
  - EMOTIONAL DISTRESS [None]
  - MENTAL DISORDER [None]
  - PULMONARY EMBOLISM [None]
